FAERS Safety Report 6022143-1 (Version None)
Quarter: 2008Q4

REPORT INFORMATION
  Report Type: 
  Country: None (occurrence: None)
  Receive Date: 20081223
  Receipt Date: 20081212
  Transmission Date: 20090506
  Serious: Yes (Hospitalization)
  Sender: FDA-Public Use
  Company Number: DSA_32894_2008

PATIENT
  Age: 79 Year
  Sex: Female

DRUGS (11)
  1. ENALAPRILL MALEATE [Suspect]
     Indication: DRUG USE FOR UNKNOWN INDICATION
     Dosage: 10 MG QD ORAL
     Route: 048
     Dates: end: 19991201
  2. SPIRONOLACTONE [Suspect]
     Indication: OEDEMA
     Dosage: 75 MG QD ORAL
     Route: 048
     Dates: end: 19991201
  3. DIGOXIN [Concomitant]
  4. BUFFERIN [Concomitant]
  5. FUROSEMIDE [Concomitant]
  6. ALUMINIUM HYDROXIDE W/MG HYDROXID/SIMETICONE [Concomitant]
  7. AMLODIPINE BESYLATE [Concomitant]
  8. SODIUM POLYSTYRENE SULFONATE/BETAXOLOL HCL [Concomitant]
  9. CALCIUM POLYSTYRENE SULFONATE [Concomitant]
  10. SENNOSIDE A [Concomitant]
  11. TICLOPIDINE HYDROCHLORIDE [Concomitant]

REACTIONS (6)
  - ANOREXIA [None]
  - BLOOD CREATININE INCREASED [None]
  - DEHYDRATION [None]
  - HAEMODIALYSIS [None]
  - HYPERKALAEMIA [None]
  - NASOPHARYNGITIS [None]
